FAERS Safety Report 7552014-0 (Version None)
Quarter: 2011Q2

REPORT INFORMATION
  Report Type: 
  Country: None (occurrence: None)
  Receive Date: 20110616
  Receipt Date: 20110608
  Transmission Date: 20111010
  Serious: Yes (Hospitalization, Other)
  Sender: FDA-Public Use
  Company Number: PHHY2011IT50928

PATIENT
  Sex: Female

DRUGS (9)
  1. CITALOPRAM HYDROBROMIDE [Concomitant]
  2. GLIBOMET [Concomitant]
  3. ASPIRIN [Concomitant]
  4. TAVOR (FLUCONAZOLE) [Concomitant]
  5. LANSOPRAZOLE [Concomitant]
  6. NORVASC [Concomitant]
     Dosage: 5 MG, UNK
     Route: 048
  7. PERIDON [Concomitant]
  8. CONGESCOR [Concomitant]
  9. RAMIPRIL+HYDROCHLOROTHIAZIDE [Suspect]
     Indication: HYPERTENSION
     Dosage: 5.25 MG,DAILY
     Route: 048
     Dates: start: 20100721, end: 20100805

REACTIONS (3)
  - AZOTAEMIA [None]
  - HYPONATRAEMIA [None]
  - HYPOKALAEMIA [None]
